FAERS Safety Report 7653110-X (Version None)
Quarter: 2011Q3

REPORT INFORMATION
  Report Type: 
  Country: None (occurrence: None)
  Receive Date: 20110803
  Receipt Date: 20110729
  Transmission Date: 20111222
  Serious: Yes (Disabling, Other)
  Sender: FDA-Public Use
  Company Number: GB-PFIZER INC-2011174363

PATIENT
  Age: 86 Year
  Sex: Male
  Weight: 92.98 kg

DRUGS (10)
  1. CALCIUM CARBONATE [Concomitant]
  2. RAMIPRIL [Concomitant]
  3. PARACETAMOL [Concomitant]
  4. DIPYRIDAMOLE [Concomitant]
  5. ASPIRIN [Concomitant]
  6. MOVIPREP [Concomitant]
  7. SIMVASTATIN [Concomitant]
  8. PREGABALIN [Suspect]
     Indication: NEURALGIA
     Dosage: 75 MG, 2X/DAY
     Route: 048
     Dates: start: 20090720, end: 20110718
  9. FINASTERIDE [Concomitant]
  10. FUROSEMIDE [Concomitant]

REACTIONS (6)
  - LEFT ATRIAL DILATATION [None]
  - HYPERTENSION [None]
  - EJECTION FRACTION DECREASED [None]
  - CARDIAC FAILURE [None]
  - DYSPNOEA [None]
  - LEFT VENTRICULAR HYPERTROPHY [None]
